FAERS Safety Report 6584150-X (Version None)
Quarter: 2010Q1

REPORT INFORMATION
  Report Type: 
  Country: None (occurrence: None)
  Receive Date: 20100216
  Receipt Date: 20100208
  Transmission Date: 20100710
  Serious: Yes (Other)
  Sender: FDA-Public Use
  Company Number: CN-JNJFOC-20100204011

PATIENT
  Age: 25 Year
  Sex: Female

DRUGS (7)
  1. RISPERDAL [Suspect]
     Indication: SCHIZOPHRENIA
     Route: 048
  2. RISPERDAL [Suspect]
     Route: 048
  3. RISPERDAL [Suspect]
     Route: 048
  4. RISPERDAL [Suspect]
     Route: 048
  5. RISPERDAL [Suspect]
     Dosage: 1 ML IN AM AND 2 ML IN PM
     Route: 048
  6. RISPERDAL [Suspect]
     Route: 048
  7. BENZHEXOL HYDROCHLORIDE [Concomitant]
     Indication: PROPHYLAXIS
     Route: 065

REACTIONS (4)
  - BREAST DISORDER [None]
  - BREAST PAIN [None]
  - DRUG ADMINISTRATION ERROR [None]
  - HYPERPROLACTINAEMIA [None]
